FAERS Safety Report 6515863-3 (Version None)
Quarter: 2009Q4

REPORT INFORMATION
  Report Type: 
  Country: None (occurrence: None)
  Receive Date: 20091223
  Receipt Date: 20091217
  Transmission Date: 20100525
  Serious: Yes (Hospitalization)
  Sender: FDA-Public Use
  Company Number: FR-ASTRAZENECA-2009SE32949

PATIENT
  Age: 25049 Day
  Sex: Female

DRUGS (8)
  1. NEXIUM [Suspect]
     Route: 048
     Dates: start: 20090805, end: 20090811
  2. SMECTA [Suspect]
     Route: 048
     Dates: start: 20090805, end: 20090811
  3. METEOSPASMYL [Suspect]
     Route: 048
     Dates: start: 20090127
  4. SPASFON [Suspect]
     Route: 048
     Dates: start: 20090622, end: 20090715
  5. INIPOMP [Suspect]
     Route: 048
     Dates: start: 20090622, end: 20090805
  6. CREON [Suspect]
     Route: 048
     Dates: start: 20090622, end: 20090715
  7. ONCTOSE [Suspect]
     Route: 061
     Dates: start: 20090808, end: 20090808
  8. GAVISCON [Suspect]
     Route: 048
     Dates: start: 20090810, end: 20090811

REACTIONS (1)
  - RASH MACULO-PAPULAR [None]
